FAERS Safety Report 8221732-3 (Version None)
Quarter: 2012Q1

REPORT INFORMATION
  Report Type: 
  Country: None (occurrence: None)
  Receive Date: 20120320
  Receipt Date: 20120305
  Transmission Date: 20120608
  Serious: Yes (Other)
  Sender: FDA-Public Use
  Company Number: GB-WATSON-2012-04415

PATIENT
  Age: 80 Year
  Sex: Female

DRUGS (2)
  1. ARIMIDEX [Concomitant]
     Indication: PRODUCT USED FOR UNKNOWN INDICATION
     Dosage: 1 MG, DAILY 3.5 YEARS
  2. ANASTROZOLE [Suspect]
     Indication: BREAST CANCER
     Dosage: 1 MG, DAILY
     Route: 048
     Dates: start: 20111001, end: 20120101

REACTIONS (3)
  - PALPITATIONS [None]
  - DYSPNOEA [None]
  - PRODUCT SUBSTITUTION ISSUE [None]
